FAERS Safety Report 9507772 (Version 2)
Quarter: 2013Q3

REPORT INFORMATION
  Report Type: Spontaneous
  Country: CA (occurrence: CA)
  Receive Date: 20130909
  Receipt Date: 20130909
  Transmission Date: 20140515
  Serious: Yes (Other)
  Sender: FDA-Public Use
  Company Number: CA-ROCHE-1265911

PATIENT
  Age: 55 Year
  Sex: Female

DRUGS (6)
  1. XOLAIR [Suspect]
     Indication: ASTHMA
     Dosage: VIAL
     Route: 058
     Dates: start: 20121112
  2. SYMBICORT [Concomitant]
  3. ALVESCO [Concomitant]
  4. PREDNISONE [Concomitant]
  5. VENTOLINE [Concomitant]
  6. OMNARIS [Concomitant]

REACTIONS (5)
  - Urticaria [Recovered/Resolved]
  - Dyspnoea [Recovered/Resolved]
  - Dizziness [Recovered/Resolved]
  - Headache [Recovered/Resolved]
  - Tremor [Unknown]
